FAERS Safety Report 19898592 (Version 1)
Quarter: 2021Q3

REPORT INFORMATION
  Report Type: Spontaneous
  Country: US (occurrence: US)
  Receive Date: 20210929
  Receipt Date: 20210929
  Transmission Date: 20211014
  Serious: Yes (Other)
  Sender: FDA-Public Use
  Company Number: US-DRREDDYS-LIT/USA/21/0142190

PATIENT
  Age: 44 Year
  Sex: Male

DRUGS (2)
  1. HEPARIN SODIUM. [Suspect]
     Active Substance: HEPARIN SODIUM
     Indication: NEPHROSTOMY
  2. BIVALIRUDIN INJECTION [Suspect]
     Active Substance: BIVALIRUDIN
     Indication: HEPARIN-INDUCED THROMBOCYTOPENIA

REACTIONS (2)
  - Heparin-induced thrombocytopenia [Recovering/Resolving]
  - Drug ineffective [Unknown]
